FAERS Safety Report 10389017 (Version 1)
Quarter: 2014Q3

REPORT INFORMATION
  Report Type: Spontaneous
  Country: US (occurrence: None)
  Receive Date: 20140812
  Receipt Date: 20140812
  Transmission Date: 20150326
  Serious: No
  Sender: FDA-Public Use
  Company Number: CC14-0900

PATIENT
  Age: 60 Year
  Sex: Male
  Weight: 72.58 kg

DRUGS (1)
  1. DICLOFENAC SODIUM. [Suspect]
     Active Substance: DICLOFENAC SODIUM
     Indication: PLANTAR FASCIITIS
     Dates: start: 201405

REACTIONS (1)
  - Application site exfoliation [None]

NARRATIVE: CASE EVENT DATE: 20140616
